FAERS Safety Report 9806171 (Version 1)
Quarter: 2014Q1

REPORT INFORMATION
  Report Type: Spontaneous
  Country: GB (occurrence: None)
  Receive Date: 20140107
  Receipt Date: 20140107
  Transmission Date: 20141002
  Serious: Yes (Disabling)
  Sender: FDA-Public Use
  Company Number: AUR-APL-2013-10933

PATIENT
  Age: 62 Year
  Sex: Female
  Weight: 61.68 kg

DRUGS (4)
  1. IRBESARTAN (IRBESARTAN) [Suspect]
     Indication: HYPERTENSION
     Route: 048
     Dates: start: 2009, end: 20131213
  2. CLOPIDOGREL (CLOPIDOGREL) [Concomitant]
  3. LEVOTHYROXINE (LEVOTHYROXINE) [Concomitant]
  4. PRAVASTATIN SODIUM (PRAVASTATIN SODIUM) [Concomitant]

REACTIONS (4)
  - Rash [None]
  - Facial pain [None]
  - Erythema [None]
  - Rosacea [None]
